FAERS Safety Report 8336975-8 (Version None)
Quarter: 2012Q2

REPORT INFORMATION
  Report Type: 
  Country: None (occurrence: None)
  Receive Date: 20120504
  Receipt Date: 20120501
  Transmission Date: 20120825
  Serious: Yes (Hospitalization, Other)
  Sender: FDA-Public Use
  Company Number: PHHY2012JP019035

PATIENT
  Age: 60 Year
  Sex: Male

DRUGS (6)
  1. WARFARIN SODIUM [Interacting]
     Dosage: 2 MG, UNK
     Route: 048
  2. ASPIRIN [Concomitant]
     Dosage: 100 MG/DAY
  3. WARFARIN SODIUM [Suspect]
     Indication: ACUTE MYOCARDIAL INFARCTION
     Dosage: 3 MG, UNK
     Route: 048
     Dates: start: 20080501
  4. SORAFENIB [Interacting]
     Dosage: 600 MG, UNK
  5. SORAFENIB [Interacting]
     Dosage: 200 MG, UNK
     Dates: start: 20100801
  6. SORAFENIB [Interacting]
     Dosage: 400 MG, UNK

REACTIONS (6)
  - ANAEMIA [None]
  - HAEMATOCHEZIA [None]
  - INTERNATIONAL NORMALISED RATIO INCREASED [None]
  - LOWER GASTROINTESTINAL HAEMORRHAGE [None]
  - DRUG INTERACTION [None]
  - GASTROINTESTINAL ANGIODYSPLASIA [None]
